FAERS Safety Report 4489107-0 (Version None)
Quarter: 2004Q4

REPORT INFORMATION
  Report Type: 
  Country: None (occurrence: None)
  Receive Date: 20041028
  Receipt Date: 20041013
  Transmission Date: 20050328
  Serious: Yes (Other)
  Sender: FDA-Public Use
  Company Number: 002966

PATIENT
  Age: 71 Year
  Sex: Male
  Weight: 78.9 kg

DRUGS (4)
  1. METHOTREXATE [Suspect]
     Indication: RHEUMATOID ARTHRITIS
     Dosage: 8.00 TABLET, 1/WEEK, ORAL
     Route: 048
     Dates: start: 20010101
  2. SYNTHROID [Concomitant]
  3. FOSAMAX [Concomitant]
  4. NATURAL STATIN [Concomitant]

REACTIONS (2)
  - TRANSIENT ISCHAEMIC ATTACK [None]
  - UPPER RESPIRATORY TRACT INFECTION [None]
